FAERS Safety Report 7088465-0 (Version None)
Quarter: 2010Q4

REPORT INFORMATION
  Report Type: 
  Country: None (occurrence: None)
  Receive Date: 20101108
  Receipt Date: 20101103
  Transmission Date: 20110411
  Serious: Yes (Hospitalization)
  Sender: FDA-Public Use
  Company Number: FR-PFIZER INC-2010116417

PATIENT
  Age: 86 Year
  Sex: Female
  Weight: 65 kg

DRUGS (15)
  1. ZYVOX [Suspect]
     Indication: BACTERIAL SEPSIS
     Dosage: 600 MG, 2X/DAY
     Route: 048
     Dates: start: 20100712, end: 20100818
  2. VASTAREL [Concomitant]
     Dosage: 35 MG
  3. TAHOR [Concomitant]
     Dosage: 10 MG
  4. ARIXTRA [Concomitant]
     Dosage: 2.5 MG
  5. ACTONEL [Concomitant]
     Dosage: 35
  6. CALCIDOSE VITAMINE D [Concomitant]
  7. TROSPIUM [Concomitant]
     Dosage: 20
  8. NEXIUM [Concomitant]
  9. PREDNISONE [Concomitant]
     Dosage: 5 MG
  10. SPECIAFOLDINE [Concomitant]
  11. DIFFU K [Concomitant]
  12. DOLIPRANE [Concomitant]
  13. DOMPERIDONE [Concomitant]
  14. FORLAX [Concomitant]
  15. GUTRON [Concomitant]
     Dosage: 2.5 MG

REACTIONS (3)
  - ALTERED STATE OF CONSCIOUSNESS [None]
  - ASTHENIA [None]
  - HYPONATRAEMIA [None]
